FAERS Safety Report 22636746 (Version 1)
Quarter: 2023Q2

REPORT INFORMATION
  Report Type: Spontaneous
  Country: US (occurrence: None)
  Receive Date: 20230621
  Receipt Date: 20230621
  Transmission Date: 20230722
  Serious: No
  Sender: FDA-Public Use
  Company Number: None

PATIENT
  Weight: 172 kg

DRUGS (11)
  1. LENALIDOMIDE [Suspect]
     Active Substance: LENALIDOMIDE
     Indication: Plasma cell myeloma
     Dosage: FREQUENCY : DAILY;?
     Route: 048
     Dates: start: 202304
  2. ACYCLOVIR [Concomitant]
     Active Substance: ACYCLOVIR
  3. ASPIRIN [Concomitant]
     Active Substance: ASPIRIN
  4. ATORVASTATIN [Concomitant]
     Active Substance: ATORVASTATIN
  5. BRIMONIDINE [Concomitant]
     Active Substance: BRIMONIDINE TARTRATE
  6. VITAMIN D3 [Concomitant]
     Active Substance: CHOLECALCIFEROL
  7. CETIRIZINE [Concomitant]
     Active Substance: CETIRIZINE HYDROCHLORIDE
  8. ENTRESTO [Concomitant]
     Active Substance: SACUBITRIL\VALSARTAN
  9. METOPROLOL [Concomitant]
     Active Substance: METOPROLOL
  10. TRAMADOL [Concomitant]
     Active Substance: TRAMADOL
  11. PAXLOVID [Concomitant]
     Active Substance: NIRMATRELVIR\RITONAVIR

REACTIONS (1)
  - COVID-19 [None]
